FAERS Safety Report 18640706 (Version 2)
Quarter: 2020Q4

REPORT INFORMATION
  Report Type: Report from Study
  Country: CO (occurrence: CO)
  Receive Date: 20201221
  Receipt Date: 20201231
  Transmission Date: 20210114
  Serious: Yes (Hospitalization, Other)
  Sender: FDA-Public Use
  Company Number: CO-AMGEN-COLSL2020160344

PATIENT
  Age: 45 Year
  Sex: Female

DRUGS (5)
  1. VECTIBIX [Suspect]
     Active Substance: PANITUMUMAB
     Indication: COLORECTAL CANCER METASTATIC
     Dosage: 100 MILLIGRAM
     Route: 065
     Dates: end: 2020
  2. VECTIBIX [Suspect]
     Active Substance: PANITUMUMAB
     Dosage: 580 MILLIGRAM, Q2WK
     Route: 042
     Dates: start: 20201101, end: 20201121
  3. VECTIBIX [Suspect]
     Active Substance: PANITUMUMAB
     Dosage: 580 MILLIGRAM, Q2WK
     Route: 042
     Dates: start: 2020
  4. VECTIBIX [Suspect]
     Active Substance: PANITUMUMAB
     Dosage: 580 MILLIGRAM, Q2WK
     Route: 042
     Dates: start: 20200913, end: 2020
  5. NATURAL TEARS [Concomitant]
     Active Substance: POLYVINYL ALCOHOL\POVIDONE
     Indication: SKIN REACTION
     Dosage: UNK

REACTIONS (6)
  - Urinary tract infection [Not Recovered/Not Resolved]
  - Inflammation [Not Recovered/Not Resolved]
  - Dry skin [Not Recovered/Not Resolved]
  - Pruritus [Not Recovered/Not Resolved]
  - Skin lesion [Not Recovered/Not Resolved]
  - Off label use [Unknown]

NARRATIVE: CASE EVENT DATE: 2020
